FAERS Safety Report 7296886-6 (Version None)
Quarter: 2011Q1

REPORT INFORMATION
  Report Type: 
  Country: None (occurrence: None)
  Receive Date: 20110216
  Receipt Date: 20110208
  Transmission Date: 20110831
  Serious: Yes (Other)
  Sender: FDA-Public Use
  Company Number: CA-JNJFOC-20110203288

PATIENT
  Sex: Female
  Weight: 64 kg

DRUGS (2)
  1. REMICADE [Suspect]
     Indication: CROHN'S DISEASE
     Route: 042
  2. UNKNOWN MEDICATION [Concomitant]
     Indication: BIPOLAR DISORDER

REACTIONS (7)
  - HOT FLUSH [None]
  - BODY TEMPERATURE INCREASED [None]
  - CHOKING SENSATION [None]
  - INFUSION RELATED REACTION [None]
  - BACK PAIN [None]
  - ERYTHEMA [None]
  - DYSPNOEA [None]
